FAERS Safety Report 7487951-9 (Version None)
Quarter: 2011Q2

REPORT INFORMATION
  Report Type: 
  Country: None (occurrence: None)
  Receive Date: 20110518
  Receipt Date: 20110513
  Transmission Date: 20111010
  Serious: Yes (Other)
  Sender: FDA-Public Use
  Company Number: US-PFIZER INC-2010132645

PATIENT
  Sex: Male

DRUGS (8)
  1. NITROGLYCERIN [Concomitant]
     Indication: CORONARY ARTERY DISEASE
     Dosage: 6.5 UNITS UNK, 2X/DAY
     Route: 048
  2. GABAPENTIN [Concomitant]
     Indication: NEUROPATHY PERIPHERAL
     Dosage: 300 MG, 4X/DAY
  3. CHANTIX [Suspect]
     Indication: SMOKING CESSATION THERAPY
     Dosage: 1 MG, 2X/DAY
     Route: 048
     Dates: start: 20100830
  4. METOPROLOL [Concomitant]
     Indication: HYPERTENSION
     Dosage: 50 UNK UNITS 2X/DAY
  5. METOPROLOL [Concomitant]
     Indication: CORONARY ARTERY DISEASE
  6. LORTAB [Concomitant]
     Indication: NEUROPATHY PERIPHERAL
     Dosage: UNK
  7. LISINOPRIL AND HYDROCHLOROTHIAZIDE [Concomitant]
     Indication: HYPERTENSION
     Dosage: 20/25, UNK
  8. LISINOPRIL AND HYDROCHLOROTHIAZIDE [Concomitant]
     Indication: CORONARY ARTERY DISEASE

REACTIONS (3)
  - DIZZINESS [None]
  - FALL [None]
  - BLOOD PRESSURE FLUCTUATION [None]
